FAERS Safety Report 18056168 (Version 2)
Quarter: 2020Q3

REPORT INFORMATION
  Report Type: Report from Study
  Country: CA (occurrence: CA)
  Receive Date: 20200722
  Receipt Date: 20200730
  Transmission Date: 20201103
  Serious: Yes (Hospitalization)
  Sender: FDA-Public Use
  Company Number: CA-JNJFOC-20200339867

PATIENT
  Age: 43 Year
  Sex: Female

DRUGS (1)
  1. REMICADE [Suspect]
     Active Substance: INFLIXIMAB
     Indication: CROHN^S DISEASE
     Dosage: PATIENT RECEIVED INFUSION IN JULY/2020
     Route: 042

REACTIONS (5)
  - Nausea [Recovering/Resolving]
  - Endocarditis [Not Recovered/Not Resolved]
  - Vomiting [Recovering/Resolving]
  - Weight increased [Unknown]
  - Sepsis [Unknown]

NARRATIVE: CASE EVENT DATE: 20200305
